FAERS Safety Report 18335388 (Version 1)
Quarter: 2020Q4

REPORT INFORMATION
  Report Type: Spontaneous
  Country: DE (occurrence: DE)
  Receive Date: 20201001
  Receipt Date: 20201001
  Transmission Date: 20210113
  Serious: Yes (Death, Life-Threatening, Hospitalization)
  Sender: FDA-Public Use
  Company Number: DE-TEVA-2020-DE-1832593

PATIENT
  Age: 82 Year
  Sex: Female

DRUGS (12)
  1. ALLOPURINOL. [Concomitant]
     Active Substance: ALLOPURINOL
     Dosage: 300 MILLIGRAM DAILY; 0-0-1-0
     Route: 048
  2. TORASEMID [Concomitant]
     Active Substance: TORSEMIDE
     Dosage: 10 MILLIGRAM DAILY; 1-0-0-0
     Route: 048
  3. CITALOPRAM [Suspect]
     Active Substance: CITALOPRAM HYDROBROMIDE
     Dosage: .5 DOSAGE FORMS DAILY; 20 MG, 0.5-0-0-0
     Route: 048
  4. LEVOTHYROXIN-NATRIUM [Concomitant]
     Active Substance: LEVOTHYROXINE SODIUM
     Dosage: 100 MICROGRAM DAILY; 1-0-0-0,
     Route: 048
  5. PANTOPRAZOL [Concomitant]
     Active Substance: PANTOPRAZOLE SODIUM
     Dosage: 20 MILLIGRAM DAILY; 1-0-0-0,
     Route: 048
  6. METOPROLOL. [Concomitant]
     Active Substance: METOPROLOL
     Dosage: .5 DOSAGE FORMS DAILY; 100 MG, 0-0-0.5-0,
     Route: 048
  7. IBUPROFEN. [Suspect]
     Active Substance: IBUPROFEN
     Dosage: IF NECESSARY, TABLETS
     Route: 048
  8. NIFEDIPIN [Concomitant]
     Active Substance: NIFEDIPINE
     Dosage: 20 MG, IF NECESSARY
     Route: 048
  9. OPIPRAMOL [Concomitant]
     Active Substance: OPIPRAMOL
     Dosage: 50 MILLIGRAM DAILY; 0-0-1-0
     Route: 048
  10. DONEPEZIL. [Concomitant]
     Active Substance: DONEPEZIL
     Dosage: 5 MILLIGRAM DAILY; 0-0-1-0,
     Route: 048
  11. COLECALCIFEROL (VITAMIN D) [Concomitant]
     Dosage: 20,000 IU / WEEK, 1X, CAPSULES
     Route: 048
  12. EXFORGE HCT 5MG/160MG/12,5MG [Concomitant]
     Dosage: 1 DOSAGE FORMS DAILY; 5|160|12.5 MG, 1-0-0-0,
     Route: 048

REACTIONS (4)
  - Condition aggravated [Unknown]
  - Hypotension [Unknown]
  - General physical health deterioration [Unknown]
  - Haematemesis [Unknown]
